FAERS Safety Report 5468845-7 (Version None)
Quarter: 2007Q3

REPORT INFORMATION
  Report Type: 
  Country: None (occurrence: None)
  Receive Date: 20070926
  Receipt Date: 20070914
  Transmission Date: 20080115
  Serious: Yes (Other)
  Sender: FDA-Public Use
  Company Number: FR-PFIZER INC-2007077560

PATIENT
  Age: 42 Year
  Sex: Female

DRUGS (3)
  1. CYTOTEC [Suspect]
     Dates: start: 20070302, end: 20070302
  2. MIFEGYNE [Suspect]
     Dates: start: 20070228, end: 20070228
  3. VOLTAREN [Concomitant]
     Dosage: DAILY DOSE:100MG
     Dates: start: 20070302, end: 20070302

REACTIONS (1)
  - DRUG INEFFECTIVE FOR UNAPPROVED INDICATION [None]
